FAERS Safety Report 7225923 (Version 5)
Quarter: 2013Q4

REPORT INFORMATION
  Report Type: Spontaneous
  Country: US (occurrence: US)
  Receive Date: 20091222
  Receipt Date: 20131121
  Transmission Date: 20140711
  Serious: Yes (Life-Threatening, Hospitalization, Other)
  Sender: FDA-Public Use
  Company Number: US-BAYER-200943241NA

PATIENT
  Age: 19 Year
  Sex: Female
  Weight: 86.36 kg

DRUGS (3)
  1. YAZ [Suspect]
     Indication: ORAL CONTRACEPTION
     Dosage: UNK
     Dates: start: 2007, end: 20090615
  2. YAZ [Suspect]
     Indication: ORAL CONTRACEPTION
     Dates: start: 2007, end: 2009
  3. METFORMIN [Concomitant]

REACTIONS (11)
  - Gallbladder non-functioning [None]
  - Cholecystitis chronic [None]
  - Biliary dyskinesia [None]
  - Organ failure [None]
  - Pain [None]
  - Weight decreased [None]
  - Fatigue [None]
  - Asthenia [None]
  - Abdominal pain upper [None]
  - Nausea [None]
  - Vomiting [None]
